FAERS Safety Report 17287013 (Version 1)
Quarter: 2020Q1

REPORT INFORMATION
  Report Type: Spontaneous
  Country: DE (occurrence: DE)
  Receive Date: 20200120
  Receipt Date: 20200120
  Transmission Date: 20200409
  Serious: Yes (Other)
  Sender: FDA-Public Use
  Company Number: DE-ALK-ABELLO A/S-2019AA004487

PATIENT

DRUGS (2)
  1. RELESS WESPENGIFT [Suspect]
     Active Substance: VESPULA FLAVOPILOSA VENOM PROTEIN\VESPULA GERMANICA VENOM PROTEIN\VESPULA MACULIFRONS VENOM PROTEIN\VESPULA PENSYLVANICA VENOM PROTEIN\VESPULA SQUAMOSA VENOM PROTEIN\VESPULA VULGARIS VENOM PROTEIN
     Indication: ALLERGY TO VENOM
     Dosage: UNK
     Route: 058
     Dates: end: 2019
  2. RELESS WESPENGIFT [Suspect]
     Active Substance: VESPULA FLAVOPILOSA VENOM PROTEIN\VESPULA GERMANICA VENOM PROTEIN\VESPULA MACULIFRONS VENOM PROTEIN\VESPULA PENSYLVANICA VENOM PROTEIN\VESPULA SQUAMOSA VENOM PROTEIN\VESPULA VULGARIS VENOM PROTEIN
     Dosage: UNK
     Route: 058
     Dates: start: 201912, end: 20191219

REACTIONS (5)
  - Inappropriate schedule of product administration [Recovered/Resolved]
  - Drug ineffective [Unknown]
  - Injection site reaction [Unknown]
  - Allergy to arthropod sting [Unknown]
  - Off label use [Recovered/Resolved]

NARRATIVE: CASE EVENT DATE: 2019
